FAERS Safety Report 8665018 (Version 5)
Quarter: 2013Q4

REPORT INFORMATION
  Report Type: Report from Study
  Country: JP (occurrence: JP)
  Receive Date: 20120715
  Receipt Date: 20131021
  Transmission Date: 20140711
  Serious: Yes (Hospitalization)
  Sender: FDA-Public Use
  Company Number: JP-MSD-0710USA02304

PATIENT
  Age: 40 Year
  Sex: Male

DRUGS (16)
  1. STOCRIN [Suspect]
     Indication: HIV INFECTION
     Dosage: 600 MG DAILY
     Route: 048
     Dates: start: 20040614, end: 20041221
  2. STOCRIN [Suspect]
     Dosage: 600 MG DAILY
     Route: 048
     Dates: start: 20051209, end: 20070711
  3. STOCRIN [Suspect]
     Dosage: 600 MG DAILY
     Route: 048
     Dates: start: 20090717, end: 20091016
  4. ISENTRESS TABLETS 400MG [Suspect]
     Indication: HIV INFECTION
     Dosage: 800MG DAILY
     Route: 048
     Dates: start: 20091016, end: 20100930
  5. EPIVIR [Suspect]
     Indication: HIV INFECTION
     Dosage: 150 MG, BID
     Route: 048
     Dates: start: 20050722, end: 20050802
  6. EPIVIR [Suspect]
     Dosage: 300 MG, QD
     Route: 048
     Dates: start: 20050803, end: 20071213
  7. NORVIR [Suspect]
     Indication: HIV INFECTION
     Dosage: 100MG DAILY
     Route: 048
     Dates: start: 20041221, end: 20050121
  8. NORVIR [Suspect]
     Dosage: 100MG DAILY
     Route: 048
     Dates: start: 20050622, end: 20070510
  9. NORVIR [Suspect]
     Dosage: 100MG DAILY
     Route: 048
     Dates: start: 20110119, end: 20110630
  10. VIREAD [Suspect]
     Indication: HIV INFECTION
     Dosage: 300MG DAILY
     Route: 048
     Dates: start: 20050802, end: 20071213
  11. REYATAZ [Suspect]
     Indication: HIV INFECTION
     Dosage: 300MG DAILY
     Route: 048
     Dates: start: 20041221, end: 20050121
  12. REYATAZ [Suspect]
     Dosage: 300MG DAILY
     Route: 048
     Dates: start: 20050622, end: 20070510
  13. KALETRA [Suspect]
     Indication: HIV INFECTION
     Dosage: 6 DF DAILY
     Route: 048
     Dates: start: 20040514, end: 20040530
  14. KALETRA [Suspect]
     Indication: HIV INFECTION
     Dosage: 4 DF DAILY
     Route: 048
     Dates: start: 20070511, end: 20091016
  15. TRUVADA [Suspect]
     Indication: HIV INFECTION
     Dosage: 1 DF DAILY
     Route: 048
     Dates: start: 20071214, end: 20101001
  16. TRUVADA [Suspect]
     Dosage: 1 DF DAILY
     Route: 048
     Dates: start: 20110701

REACTIONS (1)
  - Diabetes mellitus [Not Recovered/Not Resolved]
